FAERS Safety Report 5745842-5 (Version None)
Quarter: 2008Q2

REPORT INFORMATION
  Report Type: 
  Country: None (occurrence: None)
  Receive Date: 20080520
  Receipt Date: 20080425
  Transmission Date: 20081010
  Serious: Yes (Disabling, Other)
  Sender: FDA-Public Use
  Company Number: GXKR2008GB04292

PATIENT
  Age: 78 Year
  Sex: Male

DRUGS (5)
  1. WARFARIN SODIUM [Suspect]
     Indication: ARRHYTHMIA
     Dates: start: 20070601, end: 20080108
  2. ATENOLOL [Concomitant]
  3. TOLTERODINE TARTRATE [Concomitant]
  4. ROPINIROLE HCL [Concomitant]
  5. TAMSULOSIN HCL [Concomitant]

REACTIONS (3)
  - ECZEMA [None]
  - MUSCULOSKELETAL STIFFNESS [None]
  - NAIL GROWTH ABNORMAL [None]
